FAERS Safety Report 10225064 (Version 1)
Quarter: 2014Q2

REPORT INFORMATION
  Report Type: Spontaneous
  Country: FR (occurrence: FR)
  Receive Date: 20140609
  Receipt Date: 20140609
  Transmission Date: 20141212
  Serious: Yes (Death, Hospitalization)
  Sender: FDA-Public Use
  Company Number: FR-ASTRAZENECA-2014SE39917

PATIENT
  Age: 4642 Week
  Sex: Female

DRUGS (7)
  1. SYMBICORT [Suspect]
     Route: 055
  2. XARELTO [Suspect]
     Indication: ATRIAL FIBRILLATION
     Route: 048
  3. STABLON [Suspect]
     Indication: ATRIAL FIBRILLATION
     Route: 048
  4. SERESTA [Suspect]
     Route: 048
  5. RISPERIDONE [Suspect]
     Route: 048
  6. THIOCOLCHICOSIDE [Suspect]
     Route: 048
  7. MACROGOL [Suspect]
     Dosage: 400
     Route: 048

REACTIONS (2)
  - Cerebral haemorrhage [Fatal]
  - Respiratory arrest [Fatal]
